APPROVED DRUG PRODUCT: FLOXURIDINE
Active Ingredient: FLOXURIDINE
Strength: 500MG/VIAL
Dosage Form/Route: INJECTABLE;INJECTION
Application: A075387 | Product #001 | TE Code: AP
Applicant: HIKMA PHARMACEUTICALS USA INC
Approved: Apr 16, 2000 | RLD: No | RS: Yes | Type: RX